FAERS Safety Report 11682403 (Version 2)
Quarter: 2015Q4

REPORT INFORMATION
  Report Type: Spontaneous
  Country: LK (occurrence: LK)
  Receive Date: 20151029
  Receipt Date: 20151110
  Transmission Date: 20160304
  Serious: Yes (Death, Hospitalization)
  Sender: FDA-Public Use
  Company Number: LK-ROCHE-1649663

PATIENT
  Age: 62 Year
  Sex: Female

DRUGS (1)
  1. HERCEPTIN [Suspect]
     Active Substance: TRASTUZUMAB
     Indication: BREAST CANCER
     Route: 065

REACTIONS (6)
  - Myocardial infarction [Fatal]
  - Hypophagia [Unknown]
  - Loss of consciousness [Unknown]
  - Cardiac valve disease [Unknown]
  - Vomiting [Unknown]
  - Full blood count decreased [Unknown]
